FAERS Safety Report 8622195-6 (Version None)
Quarter: 2012Q3

REPORT INFORMATION
  Report Type: 
  Country: None (occurrence: None)
  Receive Date: 20120827
  Receipt Date: 20120816
  Transmission Date: 20120928
  Serious: Yes (Life-Threatening, Hospitalization)
  Sender: FDA-Public Use
  Company Number: FR-AMGEN-FRASP2012016841

PATIENT
  Age: 53 Year
  Sex: Male

DRUGS (3)
  1. REMICADE [Suspect]
     Indication: ANKYLOSING SPONDYLITIS
     Dosage: 3 MG/KG, SINGLE
     Route: 042
     Dates: start: 20110323, end: 20110407
  2. HUMIRA [Suspect]
     Indication: ANKYLOSING SPONDYLITIS
     Dosage: 40 MG, EVERY OTHER WEEK
     Route: 058
     Dates: start: 20061001, end: 20110218
  3. ENBREL [Suspect]
     Indication: ANKYLOSING SPONDYLITIS
     Dosage: 50 MG, WEEKLY
     Route: 058
     Dates: start: 20051101, end: 20060501

REACTIONS (1)
  - AESTHESIONEUROBLASTOMA [None]
